FAERS Safety Report 9640378 (Version 2)
Quarter: 2013Q4

REPORT INFORMATION
  Report Type: Spontaneous
  Country: US (occurrence: None)
  Receive Date: 20131021
  Receipt Date: 20131118
  Transmission Date: 20140711
  Serious: Yes (Hospitalization)
  Sender: FDA-Public Use
  Company Number: VAL_02743_2013

PATIENT
  Age: 58 Year
  Sex: Male
  Weight: 122.5 kg

DRUGS (3)
  1. METOPROLOL [Suspect]
     Indication: PRODUCT USED FOR UNKNOWN INDICATION
     Route: 048
     Dates: start: 20020102, end: 20130912
  2. CANAKINUMB [Suspect]
     Indication: CARDIOVASCULAR EVENT PROPHYLAXIS
     Dosage: NO TREATMENT RECEIVED; REGIMEN #1, SUBCUTANEOUS
     Route: 058
  3. LISINOPRIL [Concomitant]

REACTIONS (6)
  - Lethargy [None]
  - Chills [None]
  - Hyperhidrosis [None]
  - Fatigue [None]
  - Asthenia [None]
  - Drug intolerance [None]
